FAERS Safety Report 7248678-1 (Version None)
Quarter: 2011Q1

REPORT INFORMATION
  Report Type: 
  Country: None (occurrence: None)
  Receive Date: 20110128
  Receipt Date: 20110121
  Transmission Date: 20110831
  Serious: Yes (Other)
  Sender: FDA-Public Use
  Company Number: 202901

PATIENT
  Age: 40 Year
  Sex: Female
  Weight: 95 kg

DRUGS (2)
  1. AVONEX [Suspect]
     Indication: MULTIPLE SCLEROSIS
     Route: 030
     Dates: start: 20030701
  2. FLUOXETINE [Concomitant]
     Indication: DEPRESSION
     Dates: start: 20030101

REACTIONS (1)
  - CONVULSION [None]
